FAERS Safety Report 21770247 (Version 1)
Quarter: 2022Q4

REPORT INFORMATION
  Report Type: Spontaneous
  Country: JP (occurrence: JP)
  Receive Date: 20221223
  Receipt Date: 20221223
  Transmission Date: 20230112
  Serious: Yes (Death, Other)
  Sender: FDA-Public Use
  Company Number: JP-TAKEDA-2022TJP079421

PATIENT
  Age: 84 Year
  Sex: Male

DRUGS (3)
  1. AGRYLIN [Suspect]
     Active Substance: ANAGRELIDE HYDROCHLORIDE
     Indication: Essential thrombocythaemia
     Dosage: UNK
     Route: 048
  2. HYDREA [Concomitant]
     Active Substance: HYDROXYUREA
     Dosage: UNK
     Route: 065
  3. HYDREA [Concomitant]
     Active Substance: HYDROXYUREA
     Dosage: 2 DOSAGE FORM
     Route: 065

REACTIONS (1)
  - Cerebral infarction [Fatal]
